FAERS Safety Report 4867248-3 (Version None)
Quarter: 2005Q4

REPORT INFORMATION
  Report Type: 
  Country: None (occurrence: None)
  Receive Date: 20051228
  Receipt Date: 20051128
  Transmission Date: 20060501
  Serious: Yes (Hospitalization)
  Sender: FDA-Public Use
  Company Number: JP-BRISTOL-MYERS SQUIBB COMPANY-13205984

PATIENT
  Age: 51 Year
  Sex: Female

DRUGS (13)
  1. FLUDECASIN INJ [Suspect]
     Indication: SCHIZOPHRENIA
     Route: 030
     Dates: start: 20040425
  2. LULLAN [Suspect]
     Indication: SCHIZOPHRENIA
     Route: 048
     Dates: start: 20050620
  3. AMOBAN [Suspect]
     Indication: SCHIZOPHRENIA
     Route: 048
     Dates: start: 20040422
  4. HIRNAMIN [Suspect]
     Indication: SCHIZOPHRENIA
     Route: 048
     Dates: start: 20050620
  5. NEULEPTIL [Suspect]
     Indication: SCHIZOPHRENIA
     Dosage: DOSING: 80DF, 60DF, 50DF, 40DF./ THERAPY DTS: 22-APR-04, 15-SEP-05, 16-SEP-05, 30-SEP-05, 13-OCT-05
     Route: 048
  6. LODOPIN [Suspect]
     Indication: SCHIZOPHRENIA
     Route: 048
  7. LODOPIN [Suspect]
     Route: 048
  8. AKINETON [Concomitant]
     Dates: start: 20040422
  9. SELBEX [Concomitant]
     Dates: start: 20040422
  10. GASCON [Concomitant]
     Dates: start: 20040824
  11. GASMOTIN [Concomitant]
     Dates: start: 20040824
  12. LIMAS [Concomitant]
     Dates: start: 20050706
  13. SERENACE [Concomitant]
     Dates: start: 20051125

REACTIONS (2)
  - HEPATIC FUNCTION ABNORMAL [None]
  - HYPERGLYCAEMIA [None]
